FAERS Safety Report 7751883-9 (Version None)
Quarter: 2011Q3

REPORT INFORMATION
  Report Type: 
  Country: None (occurrence: None)
  Receive Date: 20110915
  Receipt Date: 20110901
  Transmission Date: 20111222
  Serious: Yes (Other)
  Sender: FDA-Public Use
  Company Number: BR-JNJFOC-20110903063

PATIENT
  Sex: Female
  Weight: 58 kg

DRUGS (1)
  1. LISTERINE WHITENING [Suspect]
     Indication: DENTAL CARE
     Route: 002
     Dates: start: 20110831, end: 20110831

REACTIONS (3)
  - APPLICATION SITE ERYTHEMA [None]
  - APPLICATION SITE PAIN [None]
  - APPLICATION SITE VESICLES [None]
